FAERS Safety Report 26012301 (Version 1)
Quarter: 2025Q4

REPORT INFORMATION
  Report Type: Spontaneous
  Country: EU (occurrence: EU)
  Receive Date: 20251107
  Receipt Date: 20251107
  Transmission Date: 20260117
  Serious: Yes (Life-Threatening, Hospitalization)
  Sender: AMGEN
  Company Number: EU-AMGEN-ROUSP2025215837

PATIENT
  Age: 59 Year

DRUGS (4)
  1. NPLATE [Suspect]
     Active Substance: ROMIPLOSTIM
     Indication: Product used for unknown indication
     Dosage: 1 MILLIGRAM/KILOGRAM
     Route: 065
     Dates: start: 2022
  2. NPLATE [Suspect]
     Active Substance: ROMIPLOSTIM
     Dosage: UNK, (RESUME TREATMENT)
     Route: 065
  3. NPLATE [Suspect]
     Active Substance: ROMIPLOSTIM
     Dosage: UNK, (2-3 MICROGRAMS/KILOGRAM)
     Route: 065
  4. Immunoglobulin [Concomitant]

REACTIONS (5)
  - Thrombocytopenia [Unknown]
  - Epistaxis [Unknown]
  - Asthenia [Unknown]
  - Cholecystitis acute [Unknown]
  - Postoperative ileus [Unknown]

NARRATIVE: CASE EVENT DATE: 20221224
